FAERS Safety Report 9454445 (Version 1)
Quarter: 2013Q3

REPORT INFORMATION
  Report Type: Report from Study
  Country: US (occurrence: US)
  Receive Date: 20130812
  Receipt Date: 20130812
  Transmission Date: 20140515
  Serious: Yes (Other)
  Sender: FDA-Public Use
  Company Number: US-ROCHE-1256166

PATIENT
  Sex: 0

DRUGS (3)
  1. BEVACIZUMAB [Suspect]
     Indication: NEOPLASM
     Route: 065
  2. SORAFENIB [Suspect]
     Indication: NEOPLASM
     Dosage: DOSED 5 OR 7 DAYS/WEEK
     Route: 065
  3. PACLITAXEL [Suspect]
     Indication: NEOPLASM
     Route: 065

REACTIONS (10)
  - Hypertension [Unknown]
  - Palmar-plantar erythrodysaesthesia syndrome [Unknown]
  - Neutropenia [Unknown]
  - Neuralgia [Unknown]
  - Mucosal inflammation [Unknown]
  - Large intestine perforation [Unknown]
  - Bladder perforation [Unknown]
  - Cerebrovascular accident [Unknown]
  - Deep vein thrombosis [Unknown]
  - Infusion related reaction [Unknown]
